FAERS Safety Report 5748145-8 (Version None)
Quarter: 2008Q2

REPORT INFORMATION
  Report Type: 
  Country: None (occurrence: None)
  Receive Date: 20080523
  Receipt Date: 20071206
  Transmission Date: 20081010
  Serious: Yes (Hospitalization)
  Sender: FDA-Public Use
  Company Number: US-BOEHRINGER INGELHEIM GMBH, GERMANY-2007-BP-02025BP

PATIENT
  Sex: Male
  Weight: 93 kg

DRUGS (20)
  1. MIRAPEX [Suspect]
     Indication: RESTLESS LEGS SYNDROME
     Route: 048
     Dates: start: 20010122, end: 20060220
  2. LISINOPRIL [Concomitant]
     Dates: start: 20040625
  3. NIASPAN [Concomitant]
     Dates: start: 20040625
  4. FOLTZ [Concomitant]
     Dates: start: 20040504
  5. CLONAZEPAM [Concomitant]
     Indication: INSOMNIA
     Dates: start: 20020826
  6. CLONAZEPAM [Concomitant]
     Indication: RESTLESS LEGS SYNDROME
  7. LIPITOR [Concomitant]
     Dates: start: 20040101
  8. TRAZODONE HCL [Concomitant]
     Indication: DEPRESSION
     Dates: start: 20051106
  9. SERZONE [Concomitant]
     Indication: DEPRESSION
     Dates: start: 19990101
  10. ASPIRIN [Concomitant]
     Dates: start: 20040625
  11. TOPROL-XL [Concomitant]
     Dates: start: 20040625
  12. LEXAPRO [Concomitant]
     Dates: start: 20041209, end: 20050901
  13. AMBIEN [Concomitant]
     Indication: INSOMNIA
     Dates: start: 20040315
  14. VALIUM [Concomitant]
     Indication: ANXIETY
     Dates: start: 20010122
  15. PLAVIX [Concomitant]
     Dates: start: 20040625
  16. HYDROCHLOROTHIAZIDE [Concomitant]
     Dates: start: 20040625
  17. WELLBUTRIN [Concomitant]
  18. UNISOM [Concomitant]
  19. NASONEX [Concomitant]
  20. CENTRUM [Concomitant]

REACTIONS (9)
  - ANXIETY [None]
  - COMPULSIONS [None]
  - ECONOMIC PROBLEM [None]
  - EMOTIONAL DISTRESS [None]
  - HYPERSEXUALITY [None]
  - INJURY [None]
  - LIBIDO INCREASED [None]
  - MYOCARDIAL INFARCTION [None]
  - PATHOLOGICAL GAMBLING [None]
